FAERS Safety Report 9471264 (Version 1)
Quarter: 2013Q3

REPORT INFORMATION
  Report Type: Spontaneous
  Country: US (occurrence: None)
  Receive Date: 20130816
  Receipt Date: 20130816
  Transmission Date: 20140515
  Serious: Yes (Hospitalization)
  Sender: FDA-Public Use
  Company Number: 1844252

PATIENT
  Age: 25 Year
  Sex: Female

DRUGS (3)
  1. KETAMINE HYDROCHLORIDE [Suspect]
     Indication: OBSESSIVE-COMPULSIVE DISORDER
     Route: 041
  2. CLOMIPRAMINE [Suspect]
     Indication: PRODUCT USED FOR UNKNOWN INDICATION
  3. ESCITALOPRAM [Suspect]
     Indication: PRODUCT USED FOR UNKNOWN INDICATION

REACTIONS (17)
  - Derealisation [None]
  - Illusion [None]
  - Dysphoria [None]
  - Parosmia [None]
  - Dysgeusia [None]
  - Poor quality sleep [None]
  - Anxiety [None]
  - Suicidal ideation [None]
  - Drug interaction [None]
  - Off label use [None]
  - Depressed mood [None]
  - Hypersomnia [None]
  - Hyperphagia [None]
  - Weight increased [None]
  - Anhedonia [None]
  - Decreased appetite [None]
  - Trichotillomania [None]
